FAERS Safety Report 8354976-0 (Version None)
Quarter: 2012Q2

REPORT INFORMATION
  Report Type: 
  Country: None (occurrence: None)
  Receive Date: 20120511
  Receipt Date: 20120503
  Transmission Date: 20120825
  Serious: Yes (Hospitalization, Other)
  Sender: FDA-Public Use
  Company Number: US-JNJFOC-20120504616

PATIENT
  Sex: Male

DRUGS (1)
  1. NUCYNTA ER [Suspect]
     Indication: PROCEDURAL PAIN
     Dosage: 1-2 TABLETS EVERY 4 TO 6 HOURS
     Route: 048
     Dates: start: 20120101, end: 20120101

REACTIONS (1)
  - ANAPHYLACTIC REACTION [None]
